FAERS Safety Report 25403763 (Version 1)
Quarter: 2025Q2

REPORT INFORMATION
  Report Type: Report from Study
  Country: JP (occurrence: JP)
  Receive Date: 20250606
  Receipt Date: 20250606
  Transmission Date: 20250716
  Serious: Yes (Other)
  Sender: UCB
  Company Number: JP-UCBJ-CD202307771UCBPHAPROD

PATIENT
  Age: 9 Year
  Sex: Male
  Weight: 37.6 kg

DRUGS (18)
  1. FENFLURAMINE HYDROCHLORIDE [Suspect]
     Active Substance: FENFLURAMINE HYDROCHLORIDE
     Indication: Severe myoclonic epilepsy of infancy
     Dosage: 0.08 MILLIGRAM/KILOGRAM, 2X/DAY (BID)
     Route: 048
     Dates: start: 20230522, end: 20230611
  2. FENFLURAMINE HYDROCHLORIDE [Suspect]
     Active Substance: FENFLURAMINE HYDROCHLORIDE
     Route: 048
     Dates: start: 2023
  3. FENFLURAMINE HYDROCHLORIDE [Suspect]
     Active Substance: FENFLURAMINE HYDROCHLORIDE
     Dosage: 0.12 MILLIGRAM/KILOGRAM, 2X/DAY (BID)
     Route: 048
     Dates: start: 20230612, end: 20230709
  4. FENFLURAMINE HYDROCHLORIDE [Suspect]
     Active Substance: FENFLURAMINE HYDROCHLORIDE
     Dosage: 0.16 MILLIGRAM/KILOGRAM, 2X/DAY (BID)
     Route: 048
     Dates: start: 20230710, end: 20230806
  5. FENFLURAMINE HYDROCHLORIDE [Suspect]
     Active Substance: FENFLURAMINE HYDROCHLORIDE
     Dosage: 0.2 MILLIGRAM/KILOGRAM, 2X/DAY (BID)
     Route: 048
     Dates: start: 20230807, end: 20230903
  6. FENFLURAMINE HYDROCHLORIDE [Suspect]
     Active Substance: FENFLURAMINE HYDROCHLORIDE
     Dosage: 0.24 MILLIGRAM/KILOGRAM, 2X/DAY (BID)
     Route: 048
     Dates: start: 20230904, end: 20231109
  7. FENFLURAMINE HYDROCHLORIDE [Suspect]
     Active Substance: FENFLURAMINE HYDROCHLORIDE
     Dosage: 0.3 MILLIGRAM/KILOGRAM, 2X/DAY (BID)
     Route: 048
     Dates: start: 20231110, end: 20240825
  8. FENFLURAMINE HYDROCHLORIDE [Suspect]
     Active Substance: FENFLURAMINE HYDROCHLORIDE
     Dosage: 0.35 MILLIGRAM/KILOGRAM, 2X/DAY (BID)
     Route: 048
     Dates: start: 20240826, end: 20241222
  9. FENFLURAMINE HYDROCHLORIDE [Suspect]
     Active Substance: FENFLURAMINE HYDROCHLORIDE
     Dosage: 0.3 MILLIGRAM/KILOGRAM, 2X/DAY (BID)
     Route: 048
     Dates: start: 20241223
  10. LEVETIRACETAM [Concomitant]
     Active Substance: LEVETIRACETAM
     Indication: Severe myoclonic epilepsy of infancy
     Dosage: 1200 MILLIGRAM, ONCE DAILY (QD)
     Route: 048
  11. MYSTAN [Concomitant]
     Active Substance: CLOBAZAM
     Indication: Severe myoclonic epilepsy of infancy
     Dosage: 4 MILLIGRAM, ONCE DAILY (QD)
     Route: 048
     Dates: end: 20230924
  12. MYSTAN [Concomitant]
     Active Substance: CLOBAZAM
     Dosage: 3 MILLIGRAM, ONCE DAILY (QD)
     Route: 048
     Dates: start: 20230925, end: 20231001
  13. MYSTAN [Concomitant]
     Active Substance: CLOBAZAM
     Dosage: 4 MILLIGRAM, ONCE DAILY (QD)
     Route: 048
     Dates: start: 20231002, end: 20250302
  14. MYSTAN [Concomitant]
     Active Substance: CLOBAZAM
     Route: 048
     Dates: start: 20250303, end: 20250406
  15. MYSTAN [Concomitant]
     Active Substance: CLOBAZAM
     Route: 048
     Dates: start: 20250407, end: 20250511
  16. MYSTAN [Concomitant]
     Active Substance: CLOBAZAM
     Route: 048
     Dates: start: 20250512
  17. RISPERDAL [Concomitant]
     Active Substance: RISPERIDONE
     Indication: Psychiatric symptom
     Dosage: 0.3 MILLIGRAM, ONCE DAILY (QD)
     Route: 048
  18. VITAMIN B6 [Concomitant]
     Active Substance: PYRIDOXINE HYDROCHLORIDE
     Indication: Psychiatric symptom
     Dosage: 100 MILLIGRAM, ONCE DAILY (QD)
     Route: 048

REACTIONS (5)
  - Epilepsy [Recovered/Resolved]
  - Decreased appetite [Not Recovered/Not Resolved]
  - Somnolence [Not Recovered/Not Resolved]
  - Off label use [Unknown]
  - Intentional underdose [Unknown]

NARRATIVE: CASE EVENT DATE: 20230522
